FAERS Safety Report 9909530 (Version 2)
Quarter: 2014Q1

REPORT INFORMATION
  Report Type: Spontaneous
  Country: US (occurrence: US)
  Receive Date: 20140219
  Receipt Date: 20140219
  Transmission Date: 20141002
  Serious: No
  Sender: FDA-Public Use
  Company Number: US-GILEAD-2012-0055456

PATIENT
  Age: 68 Year
  Sex: Female
  Weight: 126.53 kg

DRUGS (8)
  1. LETAIRIS [Suspect]
     Indication: PULMONARY HYPERTENSION
     Dosage: 5 MG, UNK
     Route: 048
     Dates: start: 20120517
  2. ADCIRCA [Concomitant]
  3. AMBIEN CR [Concomitant]
     Indication: SLEEP DISORDER
  4. ATENOLOL [Concomitant]
     Indication: HYPERTENSION
  5. COMBIVENT [Concomitant]
  6. DUONEB [Concomitant]
  7. FLONASE [Concomitant]
  8. HUMULIN N [Concomitant]

REACTIONS (5)
  - Photopsia [Unknown]
  - Abnormal sensation in eye [Not Recovered/Not Resolved]
  - Hypotension [Recovered/Resolved with Sequelae]
  - Nasal congestion [Not Recovered/Not Resolved]
  - Local swelling [Not Recovered/Not Resolved]
